FAERS Safety Report 4285470-4 (Version None)
Quarter: 2004Q1

REPORT INFORMATION
  Report Type: 
  Country: None (occurrence: None)
  Receive Date: 20040202
  Receipt Date: 20040122
  Transmission Date: 20041129
  Serious: Yes (Other)
  Sender: FDA-Public Use
  Company Number: DE-JNJFOC-20040104721

PATIENT
  Age: 65 Year
  Sex: Female
  Weight: 57 kg

DRUGS (2)
  1. REMICADE [Suspect]
     Indication: RHEUMATOID ARTHRITIS
     Dosage: 200 MG, 1 IN 8 WEEK, INTRAVENOUS
     Route: 042
     Dates: start: 20030404, end: 20031023
  2. METHOTREXATE [Concomitant]

REACTIONS (1)
  - DISSEMINATED TUBERCULOSIS [None]
